FAERS Safety Report 6557739-1 (Version None)
Quarter: 2010Q1

REPORT INFORMATION
  Report Type: 
  Country: None (occurrence: None)
  Receive Date: 20100129
  Receipt Date: 20100120
  Transmission Date: 20100710
  Serious: Yes (Other)
  Sender: FDA-Public Use
  Company Number: ES-ASTRAZENECA-2010SE02957

PATIENT
  Age: 42 Year
  Sex: Male

DRUGS (6)
  1. MERONEM [Suspect]
     Route: 042
     Dates: start: 20090723, end: 20090808
  2. ZYVOXID [Concomitant]
     Route: 042
     Dates: start: 20090723, end: 20090803
  3. NOLOTIL [Concomitant]
     Indication: ANALGESIC THERAPY
     Route: 042
     Dates: start: 20090723, end: 20090808
  4. DEXAMETHASONE [Concomitant]
     Indication: BRAIN NEOPLASM
     Dates: start: 20090723, end: 20090723
  5. CEFAZOLIN [Concomitant]
     Route: 042
     Dates: start: 20090723, end: 20090825
  6. FENITOINE [Concomitant]
     Indication: PROPHYLAXIS
     Route: 042
     Dates: start: 20090723

REACTIONS (1)
  - HEPATITIS [None]
